FAERS Safety Report 20749226 (Version 1)
Quarter: 2022Q2

REPORT INFORMATION
  Report Type: Spontaneous
  Country: US (occurrence: None)
  Receive Date: 20220426
  Receipt Date: 20220426
  Transmission Date: 20220720
  Serious: No
  Sender: FDA-Public Use
  Company Number: 2022A147811

PATIENT
  Sex: Female
  Weight: 63 kg

DRUGS (4)
  1. FARXIGA [Suspect]
     Active Substance: DAPAGLIFLOZIN PROPANEDIOL
     Indication: Diabetes mellitus
     Route: 048
     Dates: start: 2014
  2. LISINOPRIL [Concomitant]
     Active Substance: LISINOPRIL
     Route: 065
  3. ASPIRIN [Concomitant]
     Active Substance: ASPIRIN
     Route: 065
  4. VITAMIN A [Concomitant]
     Active Substance: VITAMIN A
     Route: 065

REACTIONS (7)
  - Pain [Unknown]
  - Burning sensation [Unknown]
  - Swelling [Unknown]
  - Corneal bleeding [Unknown]
  - Eye disorder [Unknown]
  - Rash [Unknown]
  - Abnormal faeces [Unknown]
